FAERS Safety Report 9119376 (Version 1)
Quarter: 2013Q1

REPORT INFORMATION
  Report Type: Spontaneous
  Country: JP (occurrence: JP)
  Receive Date: 20130207
  Receipt Date: 20130207
  Transmission Date: 20140127
  Serious: Yes (Other)
  Sender: FDA-Public Use
  Company Number: JP-MYLANLABS-2013S1002199

PATIENT
  Age: 65 Year
  Sex: Female

DRUGS (4)
  1. FLUOROURACIL [Suspect]
     Indication: BREAST CANCER FEMALE
     Route: 065
  2. EPIRUBICIN [Suspect]
     Indication: BREAST CANCER FEMALE
     Route: 065
  3. CYCLOPHOSPHAMIDE [Suspect]
     Indication: BREAST CANCER FEMALE
     Route: 065
  4. PACLITAXEL [Suspect]
     Indication: BREAST CANCER FEMALE
     Dosage: WEEKLY
     Route: 065

REACTIONS (3)
  - Neutropenia [Recovered/Resolved]
  - Septic shock [Recovered/Resolved]
  - Interstitial lung disease [Recovering/Resolving]
